FAERS Safety Report 20572405 (Version 1)
Quarter: 2022Q1

REPORT INFORMATION
  Report Type: Spontaneous
  Country: ES (occurrence: ES)
  Receive Date: 20220309
  Receipt Date: 20220309
  Transmission Date: 20220424
  Serious: Yes (Other)
  Sender: FDA-Public Use
  Company Number: ES-AEMPS-365727

PATIENT
  Age: 53 Year
  Sex: Female

DRUGS (2)
  1. ORLISTAT [Interacting]
     Active Substance: ORLISTAT
     Indication: Obesity
     Dosage: UNK
     Route: 048
     Dates: start: 20180509, end: 20180523
  2. ATENOLOL [Interacting]
     Active Substance: ATENOLOL
     Indication: Hypertension
     Dosage: DATE FICTICIA OF START OF TTO
     Route: 065
     Dates: start: 2016

REACTIONS (3)
  - Hypertensive crisis [Recovered/Resolved]
  - Condition aggravated [Recovered/Resolved]
  - Medication error [Recovered/Resolved]

NARRATIVE: CASE EVENT DATE: 20180523
